FAERS Safety Report 7321387-6 (Version None)
Quarter: 2011Q1

REPORT INFORMATION
  Report Type: 
  Country: None (occurrence: None)
  Receive Date: 20110228
  Receipt Date: 20110215
  Transmission Date: 20110831
  Serious: Yes (Hospitalization, Other)
  Sender: FDA-Public Use
  Company Number: US-PURDUE-USA-2011-0064053

PATIENT
  Sex: Female

DRUGS (2)
  1. OXYCONTIN [Suspect]
     Indication: RHEUMATOID ARTHRITIS
     Dosage: 40 MG, SEE TEXT
     Dates: start: 20100101
  2. OXYCONTIN [Suspect]
     Indication: MULTIPLE SCLEROSIS

REACTIONS (2)
  - OPTIC NEURITIS [None]
  - BLINDNESS UNILATERAL [None]
